FAERS Safety Report 12474147 (Version 1)
Quarter: 2016Q2

REPORT INFORMATION
  Report Type: Spontaneous
  Country: FR (occurrence: FR)
  Receive Date: 20160616
  Receipt Date: 20160616
  Transmission Date: 20160815
  Serious: Yes (Hospitalization, Other)
  Sender: FDA-Public Use
  Company Number: FR-ASTRAZENECA-2016SE64408

PATIENT
  Age: 89 Year
  Sex: Male

DRUGS (2)
  1. KARDEGIC [Concomitant]
     Active Substance: ASPIRIN LYSINE
     Dosage: 160.0MG UNKNOWN
  2. MOPRAL [Suspect]
     Active Substance: OMEPRAZOLE SODIUM
     Route: 048
     Dates: end: 20160522

REACTIONS (4)
  - Transient ischaemic attack [Unknown]
  - Hyponatraemia [Recovering/Resolving]
  - Speech disorder [Unknown]
  - Monoparesis [Unknown]

NARRATIVE: CASE EVENT DATE: 20160521
